FAERS Safety Report 16965357 (Version 1)
Quarter: 2019Q4

REPORT INFORMATION
  Report Type: Spontaneous
  Country: US (occurrence: US)
  Receive Date: 20190910
  Receipt Date: 20190910
  Transmission Date: 20200122
  Serious: No
  Sender: FDA-Public Use
  Company Number: None

PATIENT
  Age: 83 Year
  Sex: Female

DRUGS (1)
  1. MAVYRET [Suspect]
     Active Substance: GLECAPREVIR\PIBRENTASVIR
     Route: 048
     Dates: start: 20190723

REACTIONS (5)
  - Infection [None]
  - Pyrexia [None]
  - Rhinorrhoea [None]
  - Cough [None]
  - Headache [None]

NARRATIVE: CASE EVENT DATE: 20190909
